FAERS Safety Report 17129503 (Version 6)
Quarter: 2023Q1

REPORT INFORMATION
  Report Type: Spontaneous
  Country: US (occurrence: US)
  Receive Date: 20191209
  Receipt Date: 20230331
  Transmission Date: 20230418
  Serious: No
  Sender: FDA-Public Use
  Company Number: US-PFIZER INC-2019531370

PATIENT
  Age: 61 Year
  Sex: Female

DRUGS (1)
  1. XELJANZ XR [Suspect]
     Active Substance: TOFACITINIB CITRATE
     Dosage: 11 MG, DAILY

REACTIONS (9)
  - Arthralgia [Unknown]
  - Joint swelling [Unknown]
  - Alopecia [Not Recovered/Not Resolved]
  - Back disorder [Unknown]
  - Immune system disorder [Unknown]
  - Fatigue [Unknown]
  - Memory impairment [Unknown]
  - COVID-19 [Recovering/Resolving]
  - Hair colour changes [Unknown]
